FAERS Safety Report 7262871-3 (Version None)
Quarter: 2011Q1

REPORT INFORMATION
  Report Type: 
  Country: None (occurrence: None)
  Receive Date: 20110130
  Receipt Date: 20100914
  Transmission Date: 20110831
  Serious: Yes (Other)
  Sender: FDA-Public Use
  Company Number: US-ABBOTT-10P-163-0670872-00

PATIENT
  Sex: Female
  Weight: 68.1 kg

DRUGS (4)
  1. HUMIRA [Suspect]
     Indication: RHEUMATOID ARTHRITIS
     Route: 058
     Dates: start: 20090101
  2. LEVOTHYROXINE SODIUM [Concomitant]
     Indication: HYPOTHYROIDISM
     Dates: start: 19860101
  3. ANTIBIOTIC [Concomitant]
     Indication: NASAL SEPTAL OPERATION
     Dates: start: 20100812, end: 20100819
  4. BENICAR HCT [Concomitant]
     Indication: HYPERTENSION
     Dosage: 20/12.5 MG DAILY

REACTIONS (9)
  - FATIGUE [None]
  - PYREXIA [None]
  - DIARRHOEA [None]
  - FOOD POISONING [None]
  - SINUSITIS [None]
  - ABDOMINAL PAIN [None]
  - ARTHRALGIA [None]
  - RHEUMATOID ARTHRITIS [None]
  - PAIN [None]
